FAERS Safety Report 5189037-5 (Version None)
Quarter: 2006Q4

REPORT INFORMATION
  Report Type: 
  Country: None (occurrence: None)
  Receive Date: 20061215
  Receipt Date: 20061205
  Transmission Date: 20070319
  Serious: Yes (Disabling, Other)
  Sender: FDA-Public Use
  Company Number: CIP06001930

PATIENT
  Age: 64 Year
  Sex: Female
  Weight: 86.2 kg

DRUGS (2)
  1. ACTONEL [Suspect]
     Dosage: ORAL
     Route: 048
     Dates: start: 20040701, end: 20050701
  2. IBANDRONATE SODIUM (IBANDRONATE SODIUM) [Suspect]

REACTIONS (6)
  - IMPAIRED HEALING [None]
  - PROCEDURAL PAIN [None]
  - RESORPTION BONE INCREASED [None]
  - TOOTH EXTRACTION [None]
  - WOUND DEHISCENCE [None]
  - WOUND DRAINAGE [None]
